FAERS Safety Report 21891666 (Version 1)
Quarter: 2023Q1

REPORT INFORMATION
  Report Type: Spontaneous
  Country: US (occurrence: None)
  Receive Date: 20230120
  Receipt Date: 20230120
  Transmission Date: 20230418
  Serious: Yes (Hospitalization)
  Sender: FDA-Public Use
  Company Number: None

PATIENT
  Sex: Female

DRUGS (18)
  1. BOSENTAN [Suspect]
     Active Substance: BOSENTAN
     Indication: Product used for unknown indication
     Dosage: OTHER QUANTITY : TAKE 1 TABLET;?FREQUENCY : TWICE A DAY;?
     Route: 048
     Dates: start: 20190723
  2. ADEMPAS [Concomitant]
     Active Substance: RIOCIGUAT
  3. CHLORDIAZEP [Concomitant]
  4. CLONAZEPAM [Concomitant]
     Active Substance: CLONAZEPAM
  5. FOLIC ACID [Concomitant]
  6. FUROSEMIDE [Concomitant]
     Active Substance: FUROSEMIDE
  7. IRON SUPPLEM [Concomitant]
  8. MUCINEX [Concomitant]
     Active Substance: GUAIFENESIN
  9. MYRBETRIQ [Concomitant]
     Active Substance: MIRABEGRON
  10. PERCOCET [Concomitant]
     Active Substance: ACETAMINOPHEN\OXYCODONE HYDROCHLORIDE
  11. PHENTERMINE [Concomitant]
     Active Substance: PHENTERMINE
  12. POT CL [Concomitant]
  13. PREDNISONE [Concomitant]
     Active Substance: PREDNISONE
  14. SILDENAFIL [Concomitant]
     Active Substance: SILDENAFIL
  15. POW CITRATE [Concomitant]
  16. VITAMIN B12 [Concomitant]
  17. WARFARIN [Concomitant]
  18. XANAX XR [Concomitant]

REACTIONS (1)
  - Oxygen saturation decreased [None]
